FAERS Safety Report 4382941-7 (Version None)
Quarter: 2004Q2

REPORT INFORMATION
  Report Type: 
  Country: None (occurrence: None)
  Receive Date: 20040603
  Receipt Date: 20040303
  Transmission Date: 20050107
  Serious: Yes (Hospitalization)
  Sender: FDA-Public Use
  Company Number: 200410242US

PATIENT
  Age: 41 Year
  Sex: Female
  Weight: 91 kg

DRUGS (5)
  1. LOVENOX [Suspect]
     Indication: PULMONARY EMBOLISM
     Dosage: 80 MG BID SC
     Route: 058
     Dates: start: 20031016, end: 20040121
  2. LOVENOX [Suspect]
     Indication: PULMONARY EMBOLISM
     Dosage: 120 MG QD SC
     Route: 058
     Dates: start: 20040121
  3. WARFARIN SODIUM [Concomitant]
  4. CELEBREX [Concomitant]
  5. ATIVAN [Concomitant]

REACTIONS (7)
  - CHEST DISCOMFORT [None]
  - DISTURBANCE IN ATTENTION [None]
  - FATIGUE [None]
  - HEADACHE [None]
  - PULMONARY EMBOLISM [None]
  - TOOTH INJURY [None]
  - WEIGHT INCREASED [None]
